FAERS Safety Report 15509328 (Version 1)
Quarter: 2018Q4

REPORT INFORMATION
  Report Type: Spontaneous
  Country: US (occurrence: US)
  Receive Date: 20181016
  Receipt Date: 20181016
  Transmission Date: 20190205
  Serious: Yes (Hospitalization)
  Sender: FDA-Public Use
  Company Number: None

PATIENT
  Age: 78 Year
  Sex: Male
  Weight: 59 kg

DRUGS (1)
  1. JAKAFI [Suspect]
     Active Substance: RUXOLITINIB
     Indication: MYELOFIBROSIS
     Route: 048
     Dates: start: 20171231, end: 20180711

REACTIONS (4)
  - Asthenia [None]
  - Pain [None]
  - Dyspnoea [None]
  - Pyrexia [None]

NARRATIVE: CASE EVENT DATE: 20180711
